FAERS Safety Report 21317178 (Version 1)
Quarter: 2022Q3

REPORT INFORMATION
  Report Type: Spontaneous
  Country: US (occurrence: US)
  Receive Date: 20220911
  Receipt Date: 20220911
  Transmission Date: 20221027
  Serious: No
  Sender: FDA-Public Use
  Company Number: US-SA-SAC20220822000820

PATIENT
  Age: 58 Year
  Sex: Female

DRUGS (2)
  1. KEVZARA [Suspect]
     Active Substance: SARILUMAB
     Indication: Rheumatoid arthritis
     Dosage: UNK UNK, QOW
     Route: 058
     Dates: start: 20220712
  2. RINVOQ [Concomitant]
     Active Substance: UPADACITINIB

REACTIONS (4)
  - Injection site irritation [Unknown]
  - Injection site erythema [Unknown]
  - Injection site pruritus [Unknown]
  - Drug ineffective [Unknown]
